FAERS Safety Report 8317434 (Version 3)
Quarter: 2012Q4

REPORT INFORMATION
  Report Type: 
  Country: CH (occurrence: DE)
  Receive Date: 20111230
  Receipt Date: 20120920
  Transmission Date: 20130627
  Serious: Yes (Death, Other)
  Sender: FDA-Public Use
  Company Number: DE-AMGEN-DEUSP2011066766

PATIENT

DRUGS (6)
  1. PREDNISONE [Suspect]
     Indication: POST TRANSPLANT LYMPHOPROLIFERATIVE DISORDER
     Dosage: 50 mg/m2, UNK
     Route: 048
  2. NEUPOGEN [Suspect]
     Indication: POST TRANSPLANT LYMPHOPROLIFERATIVE DISORDER
     Dosage: UNK
     Route: 058
  3. RITUXIMAB [Suspect]
     Indication: POST TRANSPLANT LYMPHOPROLIFERATIVE DISORDER
     Dosage: 750 mg/m2, qwk
     Route: 042
  4. CYCLOPHOSPHAMIDE [Suspect]
     Indication: POST TRANSPLANT LYMPHOPROLIFERATIVE DISORDER
     Dosage: UNK
     Route: 042
  5. DOXORUBICIN [Suspect]
     Indication: POST TRANSPLANT LYMPHOPROLIFERATIVE DISORDER
     Dosage: 50 mg/m2, UNK
     Route: 042
  6. VINCRISTINE [Suspect]
     Indication: POST TRANSPLANT LYMPHOPROLIFERATIVE DISORDER
     Dosage: 1.4 mg/m2, UNK
     Route: 042

REACTIONS (9)
  - Pneumocystis jiroveci pneumonia [Fatal]
  - Hepatitis fulminant [Fatal]
  - Sepsis [Fatal]
  - Post transplant lymphoproliferative disorder [Fatal]
  - Haemorrhage [Fatal]
  - Leukopenia [Unknown]
  - Infection [Unknown]
  - Inappropriate antidiuretic hormone secretion [Fatal]
  - Cytomegalovirus colitis [Fatal]
